FAERS Safety Report 12933407 (Version 2)
Quarter: 2016Q4

REPORT INFORMATION
  Report Type: Spontaneous
  Country: US (occurrence: US)
  Receive Date: 20161111
  Receipt Date: 20161118
  Transmission Date: 20170207
  Serious: No
  Sender: FDA-Public Use
  Company Number: US-GLAXOSMITHKLINE-US2016GSK165836

PATIENT
  Sex: Female
  Weight: 74.83 kg

DRUGS (3)
  1. WELLBUTRIN [Suspect]
     Active Substance: BUPROPION HYDROCHLORIDE
     Indication: EX-TOBACCO USER
     Dosage: UNK
     Dates: start: 2003
  2. BUSPAR [Concomitant]
     Active Substance: BUSPIRONE HYDROCHLORIDE
  3. NICODERM CQ [Suspect]
     Active Substance: NICOTINE
     Indication: EX-TOBACCO USER
     Dosage: 21 MG, UNK
     Route: 062
     Dates: start: 200511

REACTIONS (8)
  - Aggression [Recovered/Resolved]
  - Application site pruritus [Unknown]
  - Wrong technique in product usage process [Unknown]
  - Nightmare [Unknown]
  - Abnormal dreams [Unknown]
  - Application site irritation [Unknown]
  - Drug ineffective [Unknown]
  - Hostility [Recovered/Resolved]

NARRATIVE: CASE EVENT DATE: 2003
